FAERS Safety Report 10192494 (Version 1)
Quarter: 2014Q2

REPORT INFORMATION
  Report Type: Spontaneous
  Country: US (occurrence: US)
  Receive Date: 20140523
  Receipt Date: 20140523
  Transmission Date: 20141212
  Serious: No
  Sender: FDA-Public Use
  Company Number: US-009507513-1405USA006407

PATIENT
  Sex: Male

DRUGS (4)
  1. CLARITIN CHEWABLE TABLETS [Suspect]
     Indication: NASOPHARYNGITIS
     Dosage: UNK, UNKNOWN
     Route: 048
  2. CLARITIN CHEWABLE TABLETS [Suspect]
     Indication: HYPERSENSITIVITY
  3. CLARITIN CHEWABLE TABLETS [Suspect]
     Indication: THROAT IRRITATION
  4. CLARITIN CHEWABLE TABLETS [Suspect]
     Indication: UPPER-AIRWAY COUGH SYNDROME

REACTIONS (1)
  - Drug effect decreased [Unknown]
